FAERS Safety Report 21890182 (Version 1)
Quarter: 2023Q1

REPORT INFORMATION
  Report Type: Spontaneous
  Country: ES (occurrence: ES)
  Receive Date: 20230120
  Receipt Date: 20230120
  Transmission Date: 20230418
  Serious: Yes (Hospitalization)
  Sender: FDA-Public Use
  Company Number: None

PATIENT
  Age: 76 Year
  Sex: Male

DRUGS (13)
  1. CAPECITABINE [Suspect]
     Active Substance: CAPECITABINE
     Indication: Rectal cancer
     Dosage: 3000 MILLIGRAM DAILY; 1500.0 1500 MG-CYCLE 4 C/12 H CAPECITABINA (1224A)
     Dates: start: 20220726, end: 20220820
  2. ALOGLIPTIN BENZOATE\METFORMIN HYDROCHLORIDE [Concomitant]
     Active Substance: ALOGLIPTIN BENZOATE\METFORMIN HYDROCHLORIDE
     Indication: Diabetes mellitus
     Dosage: 2 DOSAGE FORMS DAILY; 1.0 COMP C/12 H  ,12.5 MG/850 MG , 56 TABLETS
     Dates: start: 20181130
  3. ACLIDINIUM BROMIDE [Concomitant]
     Active Substance: ACLIDINIUM BROMIDE
     Indication: Bronchitis
     Dosage: 2 DOSAGE FORMS DAILY; 1.0 PUFF C/12 H , 1 INHALER OF 60 DOSES
     Dates: start: 20131114
  4. JARDIANCE [Concomitant]
     Active Substance: EMPAGLIFLOZIN
     Indication: Diabetes mellitus
     Dosage: 10 MILLIGRAM DAILY;  30 TABLETS
     Dates: start: 20190108
  5. AMLODIPINO CINFA [Concomitant]
     Indication: Hypertension
     Dosage: 5.0 MG CE , TABLETS EFG, 30 TABLETS
     Dates: start: 20211118
  6. GABAPENTIN TEVAGEN [Concomitant]
     Indication: Dupuytren^s contracture
     Dosage: 600.0 MG DECOCE , 90 CAPSULES
     Dates: start: 20100618
  7. SYMBICORT [Concomitant]
     Active Substance: BUDESONIDE\FORMOTEROL FUMARATE DIHYDRATE
     Indication: Bronchiectasis
     Dosage: 4 DOSAGE FORMS DAILY; 2.0 PUFF C/12 H , 160 MICROGRAMS/4.5 MICROGRAMS/, 1 INHALER OF 120 DOSES
     Route: 055
     Dates: start: 20101109
  8. ACETYLSALICYLIC ACID ALTER [Concomitant]
     Indication: Diabetes mellitus
     Dosage: 100.0 MG DE, GASTRORESISTANT TABLETS EFG 30 TABLETS
     Dates: start: 20160909
  9. ATORVASTATIN CALCIUM [Concomitant]
     Active Substance: ATORVASTATIN CALCIUM
     Indication: Type V hyperlipidaemia
     Dosage: 10.0 MG CE , 28 TABLETS
     Dates: start: 20171227
  10. OMEPRAZOLE [Concomitant]
     Active Substance: OMEPRAZOLE
     Indication: Product used for unknown indication
     Dosage: 20.0 MG A-DE  ,EFG GASTRORESISTANT HARD CAPSULES, 56 CAPSULES
     Dates: start: 20121002
  11. ACETAMINOPHEN [Concomitant]
     Active Substance: ACETAMINOPHEN
     Indication: Pain
     Dosage: 1.0 G DECOCE, TABLET EFG, 40 TABLETS
     Dates: start: 20211118
  12. TOUJEO [Concomitant]
     Active Substance: INSULIN GLARGINE
     Indication: Diabetes mellitus
     Dosage: 20 IU (INTERNATIONAL UNIT) DAILY;  ,300 UNITS/ML , 3 PENS 1.5 ML
     Dates: start: 20190430
  13. AMLODIPINE BESYLATE\HYDROCHLOROTHIAZIDE\OLMESARTAN MEDOXOMIL [Concomitant]
     Active Substance: AMLODIPINE BESYLATE\HYDROCHLOROTHIAZIDE\OLMESARTAN MEDOXOMIL
     Indication: Essential hypertension
     Dosage: 1 DOSAGE FORMS DAILY; 1.0 COMP C/24H ,20 MG/5 MG/12.5 MG , 28 TABLETS
     Dates: start: 20190709

REACTIONS (1)
  - Diarrhoea [Recovered/Resolved]

NARRATIVE: CASE EVENT DATE: 20220819
